FAERS Safety Report 18683905 (Version 4)
Quarter: 2021Q1

REPORT INFORMATION
  Report Type: Report from Study
  Country: CL (occurrence: CL)
  Receive Date: 20201230
  Receipt Date: 20210304
  Transmission Date: 20210419
  Serious: Yes (Other)
  Sender: FDA-Public Use
  Company Number: CL-JNJFOC-20201252628

PATIENT
  Age: 31 Year
  Sex: Female

DRUGS (1)
  1. REMICADE [Suspect]
     Active Substance: INFLIXIMAB
     Indication: CROHN^S DISEASE
     Route: 042
     Dates: start: 20171123, end: 20201026

REACTIONS (3)
  - Crohn^s disease [Recovered/Resolved]
  - Drug ineffective [Unknown]
  - Ileocaecal resection [Recovering/Resolving]

NARRATIVE: CASE EVENT DATE: 2020
